FAERS Safety Report 7063092-X (Version None)
Quarter: 2010Q4

REPORT INFORMATION
  Report Type: 
  Country: None (occurrence: None)
  Receive Date: 20101026
  Receipt Date: 20100420
  Transmission Date: 20110411
  Serious: No
  Sender: FDA-Public Use
  Company Number: US-PFIZER INC-2010027564

PATIENT
  Sex: Male
  Weight: 93.424 kg

DRUGS (1)
  1. LIPITOR [Suspect]
     Dosage: 40 MG, DAILY
     Route: 048
     Dates: end: 20100224

REACTIONS (1)
  - BLOOD GLUCOSE INCREASED [None]
